FAERS Safety Report 6634362-1 (Version None)
Quarter: 2010Q1

REPORT INFORMATION
  Report Type: 
  Country: None (occurrence: None)
  Receive Date: 20100315
  Receipt Date: 20100302
  Transmission Date: 20100710
  Serious: Yes (Hospitalization, Other)
  Sender: FDA-Public Use
  Company Number: FR-ROCHE-602736

PATIENT
  Sex: Female
  Weight: 69 kg

DRUGS (5)
  1. CAPECITABINE [Suspect]
     Indication: BREAST CANCER
     Dosage: ON DAY 1 AND DAY 14 EVERY 3 WEEKS. TEMPORARILY STOPPED.
     Route: 048
     Dates: start: 20081011, end: 20081119
  2. CAPECITABINE [Suspect]
     Dosage: THERAPY RESTARTED.
     Route: 048
     Dates: start: 20081219, end: 20090904
  3. SU11248 [Suspect]
     Indication: BREAST CANCER
     Dosage: TEMPORARILY DISCONTINUED.
     Route: 048
     Dates: start: 20081011, end: 20081119
  4. SU11248 [Suspect]
     Dosage: THERAPY RESTARTED WITH A REDUCED DOSE.
     Route: 048
     Dates: start: 20081219, end: 20090911
  5. SINTROM [Concomitant]
     Indication: THROMBOSIS PROPHYLAXIS
     Dates: start: 20080601, end: 20081119

REACTIONS (4)
  - DIZZINESS [None]
  - FATIGUE [None]
  - GENERAL PHYSICAL HEALTH DETERIORATION [None]
  - VOMITING [None]
